FAERS Safety Report 24692186 (Version 1)
Quarter: 2024Q4

REPORT INFORMATION
  Report Type: Spontaneous
  Country: US (occurrence: None)
  Receive Date: 20241203
  Receipt Date: 20241203
  Transmission Date: 20250115
  Serious: Yes (Hospitalization)
  Sender: Public
  Company Number: None

PATIENT
  Age: 73 Year
  Sex: Female
  Weight: 115.65 kg

DRUGS (11)
  1. FLECAINIDE [Suspect]
     Active Substance: FLECAINIDE
     Indication: Atrial fibrillation
     Dosage: 1 TABLET EVERY 12 HOURS ORAL
     Route: 048
     Dates: start: 20241127, end: 20241129
  2. EZETIMIBE [Concomitant]
     Active Substance: EZETIMIBE
  3. PRAVASTATIN [Concomitant]
     Active Substance: PRAVASTATIN
  4. LOSARTAN AND HYDROCHLOROTHIAZIDE [Concomitant]
     Active Substance: HYDROCHLOROTHIAZIDE\LOSARTAN POTASSIUM
  5. CLOPIDOGREL [Concomitant]
     Active Substance: CLOPIDOGREL BISULFATE
  6. METOPROLOL [Concomitant]
     Active Substance: METOPROLOL
  7. Watchman device [Concomitant]
  8. loop recorder device [Concomitant]
  9. LOW-DOSE ASPIRIN [Concomitant]
     Active Substance: ASPIRIN
  10. IBUPROFEN [Concomitant]
     Active Substance: IBUPROFEN
  11. ESOMEPRAZOLE [Concomitant]
     Active Substance: ESOMEPRAZOLE

REACTIONS (8)
  - Dizziness [None]
  - Fatigue [None]
  - Chest pain [None]
  - Dyspnoea [None]
  - Neck pain [None]
  - Ear pain [None]
  - Hypoaesthesia oral [None]
  - Pyrexia [None]

NARRATIVE: CASE EVENT DATE: 20241129
